FAERS Safety Report 10642550 (Version 1)
Quarter: 2014Q4

REPORT INFORMATION
  Report Type: Spontaneous
  Country: CA (occurrence: None)
  Receive Date: 20141208
  Receipt Date: 20141208
  Transmission Date: 20150529
  Serious: No
  Sender: FDA-Public Use
  Company Number: None

PATIENT
  Age: 44 Year
  Sex: Male
  Weight: 58.97 kg

DRUGS (1)
  1. IMURAN [Suspect]
     Active Substance: AZATHIOPRINE
     Indication: RASH
     Dosage: 25 MG, ONCE DAILY, TAKEN BY MOUTH
     Route: 048
     Dates: start: 20041006, end: 20141110

REACTIONS (9)
  - Abdominal pain [None]
  - White blood cell count increased [None]
  - Lymphocyte count increased [None]
  - Alanine aminotransferase increased [None]
  - Vomiting [None]
  - Fluid retention [None]
  - Abdominal distension [None]
  - Neutrophil count increased [None]
  - Diarrhoea [None]

NARRATIVE: CASE EVENT DATE: 20141110
